FAERS Safety Report 6974945-2 (Version None)
Quarter: 2010Q3

REPORT INFORMATION
  Report Type: 
  Country: None (occurrence: None)
  Receive Date: 20100909
  Receipt Date: 20090108
  Transmission Date: 20110219
  Serious: No
  Sender: FDA-Public Use
  Company Number: US-WYE-H07637009

PATIENT
  Sex: Female
  Weight: 72.64 kg

DRUGS (5)
  1. PRISTIQ [Suspect]
     Indication: DEPRESSION
     Route: 048
     Dates: start: 20080901, end: 20081201
  2. PRISTIQ [Suspect]
     Route: 048
     Dates: start: 20081201, end: 20090103
  3. ESTRATEST [Concomitant]
  4. ACIPHEX [Concomitant]
  5. PERCOCET [Concomitant]

REACTIONS (7)
  - BALANCE DISORDER [None]
  - DRUG WITHDRAWAL SYNDROME [None]
  - INSOMNIA [None]
  - MUSCLE TWITCHING [None]
  - TINNITUS [None]
  - TREMOR [None]
  - UNEVALUABLE EVENT [None]
